FAERS Safety Report 25970189 (Version 2)
Quarter: 2025Q4

REPORT INFORMATION
  Report Type: Spontaneous
  Country: EU (occurrence: EU)
  Receive Date: 20251028
  Receipt Date: 20251030
  Transmission Date: 20260117
  Serious: Yes (Death, Other)
  Sender: SANDOZ
  Company Number: EU-NOVPHSZ-GXKR2004IT04609

PATIENT
  Age: 45 Year
  Sex: Female

DRUGS (41)
  1. BETAMETHASONE [Suspect]
     Active Substance: BETAMETHASONE
     Dosage: 8 MG
     Route: 065
     Dates: start: 20021106, end: 20021110
  2. BETAMETHASONE [Suspect]
     Active Substance: BETAMETHASONE
     Indication: Product used for unknown indication
     Dosage: UNK
     Route: 065
     Dates: end: 20020927
  3. CALCITRIOL [Suspect]
     Active Substance: CALCITRIOL
     Indication: Product used for unknown indication
     Dosage: 0.5 UG, AT 08.00 HOURS
     Route: 065
     Dates: start: 20020927, end: 20021106
  4. CEFACLOR [Suspect]
     Active Substance: CEFACLOR
     Indication: Cystitis
     Dosage: UNK
     Route: 065
     Dates: end: 20020927
  5. CEFACLOR [Suspect]
     Active Substance: CEFACLOR
     Indication: Cystitis
  6. CEFACLOR [Suspect]
     Active Substance: CEFACLOR
     Indication: Oral candidiasis
  7. CALCIUM CARBONATE [Suspect]
     Active Substance: CALCIUM CARBONATE
     Dosage: 1 G
     Route: 065
     Dates: start: 20021004
  8. CALCIUM CARBONATE [Suspect]
     Active Substance: CALCIUM CARBONATE
     Indication: Agitation
     Dosage: 1 G, UNK
     Route: 065
     Dates: start: 20020927
  9. CALCIUM GLUCONATE [Suspect]
     Active Substance: CALCIUM GLUCONATE
     Indication: Product used for unknown indication
     Dosage: 1 G
     Route: 065
     Dates: start: 20021009, end: 20021110
  10. AMOXICILLIN\CLAVULANATE POTASSIUM [Suspect]
     Active Substance: AMOXICILLIN\CLAVULANATE POTASSIUM
     Indication: Pneumonia
     Dosage: 3600 MG, QD
     Route: 042
     Dates: start: 20021004, end: 20021019
  11. CORTISONE ACETATE [Suspect]
     Active Substance: CORTISONE ACETATE
     Indication: Product used for unknown indication
     Dosage: 50 MG, QD (CUMULATIVE DOSE 3505.263 MG)
     Route: 065
     Dates: start: 20020927, end: 20021103
  12. DIAZEPAM [Suspect]
     Active Substance: DIAZEPAM
     Indication: Agitation
     Dosage: UNK, QD
     Route: 065
     Dates: start: 20021009, end: 20021106
  13. DIAZEPAM [Suspect]
     Active Substance: DIAZEPAM
     Indication: Hallucination
  14. FUROSEMIDE [Suspect]
     Active Substance: FUROSEMIDE
     Indication: Renal impairment
     Dosage: UNK
     Route: 048
     Dates: start: 20021004, end: 20021015
  15. FUROSEMIDE [Suspect]
     Active Substance: FUROSEMIDE
     Indication: Oliguria
     Dosage: UNK DOSAGE FORMS
     Route: 042
     Dates: start: 20021027, end: 20021106
  16. FLUDROCORTISONE [Suspect]
     Active Substance: FLUDROCORTISONE
     Indication: Product used for unknown indication
     Dosage: UNK
     Route: 065
     Dates: start: 20020927, end: 20020927
  17. FLUDROCORTISONE [Suspect]
     Active Substance: FLUDROCORTISONE
     Dosage: UNK
     Route: 065
     Dates: start: 20020927, end: 20021024
  18. HALOPERIDOL [Suspect]
     Active Substance: HALOPERIDOL
     Indication: Agitation
     Dosage: UNK QD
     Route: 065
     Dates: start: 20021009, end: 20021104
  19. ITRACONAZOLE [Suspect]
     Active Substance: ITRACONAZOLE
     Indication: Oral candidiasis
     Dosage: 100 MG
     Route: 065
     Dates: start: 20021009, end: 20021106
  20. LEVOFLOXACIN [Suspect]
     Active Substance: LEVOFLOXACIN
     Indication: Pneumonia
     Dosage: 500 MG, QD
     Route: 048
     Dates: start: 20021004, end: 20021019
  21. METOCLOPRAMIDE [Suspect]
     Active Substance: METOCLOPRAMIDE
     Indication: Product used for unknown indication
     Dosage: UNK
     Route: 065
     Dates: start: 20020927, end: 20020927
  22. NYSTATIN [Suspect]
     Active Substance: NYSTATIN
     Indication: Oral candidiasis
     Dosage: 12 ML (DAILY DOSE)
     Route: 065
     Dates: start: 20020927, end: 20021009
  23. NYSTATIN [Suspect]
     Active Substance: NYSTATIN
     Indication: Cystitis
     Dosage: 12 ML
     Route: 065
     Dates: start: 20020927, end: 20020927
  24. NYSTATIN [Suspect]
     Active Substance: NYSTATIN
     Indication: Cystitis
  25. OMEPRAZOLE [Suspect]
     Active Substance: OMEPRAZOLE
     Indication: Product used for unknown indication
     Dosage: 20 MG
     Route: 048
     Dates: start: 20020927, end: 20021103
  26. OMEPRAZOLE [Suspect]
     Active Substance: OMEPRAZOLE
     Dosage: 620 MG
     Route: 048
  27. PANTOPRAZOLE [Suspect]
     Active Substance: PANTOPRAZOLE
     Indication: Prophylaxis
     Dosage: UNK
     Route: 048
     Dates: start: 20021009, end: 20021106
  28. RABEPRAZOLE [Suspect]
     Active Substance: RABEPRAZOLE
     Indication: Product used for unknown indication
     Dosage: UNK
     Route: 065
     Dates: start: 20020927, end: 20020927
  29. ALUMINUM HYDROXIDE [Concomitant]
     Active Substance: ALUMINUM HYDROXIDE
     Indication: Product used for unknown indication
     Dosage: UNK
     Route: 048
     Dates: start: 20020927, end: 20021106
  30. CALCIUM LACTATE GLUCONATE ANHYDROUS [Concomitant]
     Active Substance: CALCIUM LACTATE GLUCONATE ANHYDROUS
     Indication: Product used for unknown indication
     Dosage: UNK
     Route: 065
     Dates: start: 20020927
  31. CHLORPHENIRAMINE MALEATE [Concomitant]
     Active Substance: CHLORPHENIRAMINE MALEATE
     Indication: Product used for unknown indication
     Dosage: UNK
     Route: 065
     Dates: start: 20021106, end: 20021110
  32. GENTAMICIN [Concomitant]
     Active Substance: GENTAMICIN
     Indication: Product used for unknown indication
     Dosage: UNK
     Route: 065
     Dates: start: 20021106, end: 20021110
  33. DEXTROSE [Concomitant]
     Active Substance: DEXTROSE MONOHYDRATE
     Indication: Product used for unknown indication
     Dosage: UNK
     Route: 065
     Dates: start: 20021106, end: 20021110
  34. HYDROCORTISONE HEMISUCCINATE [Concomitant]
     Active Substance: HYDROCORTISONE HEMISUCCINATE
     Indication: Product used for unknown indication
     Dosage: 200 MG
     Route: 065
     Dates: start: 20021103, end: 20021106
  35. INSULIN PORK\INSULIN PURIFIED PORK [Concomitant]
     Active Substance: INSULIN PORK\INSULIN PURIFIED PORK
     Indication: Product used for unknown indication
     Dosage: UNK
     Route: 065
     Dates: start: 20021106, end: 20021110
  36. MAGNESIUM HYDROXIDE [Concomitant]
     Active Substance: MAGNESIUM HYDROXIDE
     Indication: Product used for unknown indication
     Dosage: UNK
     Route: 065
     Dates: start: 20020927
  37. PIPERACILLIN [Concomitant]
     Active Substance: PIPERACILLIN
     Indication: Product used for unknown indication
     Dosage: UNK
     Route: 065
     Dates: start: 20021102, end: 20021104
  38. POVIDONE-IODINE [Concomitant]
     Active Substance: POVIDONE-IODINE
     Indication: Product used for unknown indication
     Dosage: UNK
     Route: 065
     Dates: start: 20021106, end: 20021110
  39. RANITIDINE [Concomitant]
     Active Substance: RANITIDINE
     Indication: Product used for unknown indication
     Dosage: UNK
     Route: 065
     Dates: start: 20021103, end: 20021110
  40. RIFAMYCIN [Concomitant]
     Active Substance: RIFAMYCIN
     Indication: Product used for unknown indication
     Dosage: UNK
     Route: 065
     Dates: start: 20021104, end: 20021106
  41. SODIUM CHLORIDE [Concomitant]
     Active Substance: SODIUM CHLORIDE
     Indication: Product used for unknown indication
     Dosage: UNK
     Route: 065

REACTIONS (25)
  - Septic shock [Fatal]
  - Septic shock [Fatal]
  - Pyrexia [Fatal]
  - Rash [Fatal]
  - Skin infection [Fatal]
  - Mouth ulceration [Fatal]
  - Skin exfoliation [Fatal]
  - Staphylococcal sepsis [Fatal]
  - Skin lesion [Fatal]
  - Blister [Fatal]
  - Rash macular [Fatal]
  - Rash erythematous [Fatal]
  - Toxic epidermal necrolysis [Fatal]
  - Respiratory distress [Unknown]
  - Polyglandular disorder [Unknown]
  - Chronic hepatitis [Unknown]
  - Hallucination [Unknown]
  - Oliguria [Unknown]
  - Cystitis [Unknown]
  - Anaemia folate deficiency [Unknown]
  - Hypoparathyroidism [Unknown]
  - Endocrine disorder [Unknown]
  - Vitiligo [Unknown]
  - Agitation [Unknown]
  - Candida infection [Unknown]

NARRATIVE: CASE EVENT DATE: 20021001
